FAERS Safety Report 10920581 (Version 5)
Quarter: 2015Q2

REPORT INFORMATION
  Report Type: Report from Study
  Country: CA (occurrence: CA)
  Receive Date: 20150317
  Receipt Date: 20150512
  Transmission Date: 20150821
  Serious: Yes (Death, Hospitalization, Other)
  Sender: FDA-Public Use
  Company Number: PHHY2014CA158264

PATIENT
  Age: 55 Year
  Sex: Female

DRUGS (2)
  1. CLOZARIL [Suspect]
     Active Substance: CLOZAPINE
     Indication: SCHIZOPHRENIA
     Route: 048
     Dates: start: 20121012
  2. CLOZARIL [Suspect]
     Active Substance: CLOZAPINE
     Dosage: 575 MG, UNK
     Route: 048

REACTIONS (4)
  - Schizophrenia [Unknown]
  - Lung cancer metastatic [Fatal]
  - Neutrophilia [Not Recovered/Not Resolved]
  - Leukocytosis [Not Recovered/Not Resolved]

NARRATIVE: CASE EVENT DATE: 20140610
